FAERS Safety Report 17178627 (Version 1)
Quarter: 2019Q4

REPORT INFORMATION
  Report Type: Spontaneous
  Country: US (occurrence: US)
  Receive Date: 20191219
  Receipt Date: 20191219
  Transmission Date: 20200122
  Serious: No
  Sender: FDA-Public Use
  Company Number: US-AUROBINDO-AUR-APL-2019-071746

PATIENT

DRUGS (2)
  1. ARMODAFINIL 250 MG TABLETS [Suspect]
     Active Substance: ARMODAFINIL
     Indication: POOR QUALITY SLEEP
     Dosage: HE TOOK THE DOSE AS 250 MG, HALF TABLET PER N DAY, IF NEEDED HE TAKES ANOTHER HALF TABLET
     Route: 065
     Dates: start: 201910
  2. HYDROCHLOROTHIAZIDE. [Concomitant]
     Active Substance: HYDROCHLOROTHIAZIDE
     Indication: PRODUCT USED FOR UNKNOWN INDICATION
     Dosage: UNK
     Route: 065

REACTIONS (4)
  - Product substitution issue [Unknown]
  - Drug ineffective [Unknown]
  - Extra dose administered [Unknown]
  - Wrong technique in product usage process [Unknown]

NARRATIVE: CASE EVENT DATE: 201910
